FAERS Safety Report 20760812 (Version 1)
Quarter: 2022Q2

REPORT INFORMATION
  Report Type: Spontaneous
  Country: US (occurrence: US)
  Receive Date: 20220428
  Receipt Date: 20220428
  Transmission Date: 20220721
  Serious: No
  Sender: FDA-Public Use
  Company Number: US-TEVA-2022-US-2023547

PATIENT
  Age: 74 Year
  Sex: Female

DRUGS (1)
  1. METOPROLOL SUCCINATE [Suspect]
     Active Substance: METOPROLOL SUCCINATE
     Indication: Hypertension
     Route: 065
     Dates: start: 20220304

REACTIONS (4)
  - Arthralgia [Unknown]
  - Vision blurred [Unknown]
  - Cough [Unknown]
  - Amnesia [Unknown]

NARRATIVE: CASE EVENT DATE: 20220301
